APPROVED DRUG PRODUCT: POTASSIUM CHLORIDE 20MEQ IN DEXTROSE 5% IN SODIUM CHLORIDE 0.3% IN PLASTIC CONTAINER
Active Ingredient: DEXTROSE; POTASSIUM CHLORIDE; SODIUM CHLORIDE
Strength: 5GM/100ML;149MG/100ML;300MG/100ML
Dosage Form/Route: INJECTABLE;INJECTION
Application: N018876 | Product #002
Applicant: ICU MEDICAL INC
Approved: Jan 17, 1986 | RLD: No | RS: No | Type: DISCN